FAERS Safety Report 6767068-9 (Version None)
Quarter: 2010Q2

REPORT INFORMATION
  Report Type: 
  Country: None (occurrence: None)
  Receive Date: 20100613
  Receipt Date: 20100531
  Transmission Date: 20101027
  Serious: Yes (Life-Threatening, Hospitalization)
  Sender: FDA-Public Use
  Company Number: DE-MYLANLABS-2010S1009785

PATIENT
  Age: 77 Year
  Sex: Female
  Weight: 71 kg

DRUGS (13)
  1. PREDNISOLONE [Interacting]
     Indication: RHEUMATOID ARTHRITIS
     Route: 048
     Dates: start: 20060901
  2. VOLTAREN [Interacting]
     Indication: RHEUMATOID ARTHRITIS
     Route: 048
     Dates: start: 20060901, end: 20090516
  3. DIGITOXIN [Interacting]
     Indication: ATRIAL FIBRILLATION
     Route: 048
     Dates: start: 20070901, end: 20090514
  4. VERAPAMIL [Suspect]
     Indication: ATRIAL FIBRILLATION
     Route: 048
     Dates: start: 20060101, end: 20090514
  5. AZITHROMYCIN [Interacting]
     Indication: BRONCHITIS
     Route: 048
     Dates: start: 20090501, end: 20090511
  6. MTX HEXAL [Concomitant]
     Indication: RHEUMATOID ARTHRITIS
     Route: 058
     Dates: start: 20090202, end: 20090216
  7. ESIDRIX [Concomitant]
     Indication: HYPERTENSION
     Route: 048
     Dates: start: 20070101
  8. ACETYLSALICYLIC ACID [Concomitant]
     Indication: CORONARY ARTERY DISEASE
     Route: 048
     Dates: start: 20080501
  9. LEVOTHYROXINE SODIUM [Concomitant]
     Indication: THYROID FUNCTION TEST ABNORMAL
     Dates: start: 19960101
  10. FOSAMAX [Concomitant]
     Indication: OSTEOPOROSIS
     Route: 048
     Dates: start: 20060101
  11. SYMBICORT [Concomitant]
     Indication: BRONCHITIS
     Route: 055
     Dates: start: 20090501
  12. CALCIUM +D3 [Concomitant]
     Indication: OSTEOPOROSIS
     Route: 048
     Dates: start: 20060101
  13. AMBROXOL [Concomitant]
     Indication: BRONCHITIS
     Route: 048
     Dates: start: 20090501, end: 20090511

REACTIONS (3)
  - DRUG INTERACTION [None]
  - PULMONARY EMBOLISM [None]
  - THERAPEUTIC AGENT TOXICITY [None]
